FAERS Safety Report 23194352 (Version 1)
Quarter: 2023Q4

REPORT INFORMATION
  Report Type: Spontaneous
  Country: SE (occurrence: SE)
  Receive Date: 20231117
  Receipt Date: 20231117
  Transmission Date: 20240109
  Serious: Yes (Other)
  Sender: FDA-Public Use
  Company Number: None

PATIENT
  Age: 78 Year
  Sex: Male

DRUGS (4)
  1. LEVETIRACETAM [Suspect]
     Active Substance: LEVETIRACETAM
     Indication: Epilepsy
     Dosage: UNK,  UNK
     Route: 065
     Dates: start: 20191230
  2. ENALAPRIL [Concomitant]
     Active Substance: ENALAPRIL
     Indication: Aortic dissection
     Dosage: 5 MG, ONCE PER DAY
     Route: 065
     Dates: start: 201504, end: 20230802
  3. METOPROLOL [Concomitant]
     Active Substance: METOPROLOL
     Indication: Aortic dissection
     Dosage: 100 MG, ONCE PER DAY
     Route: 065
     Dates: start: 201504
  4. BICALUTAMIDE [Concomitant]
     Active Substance: BICALUTAMIDE
     Indication: Product used for unknown indication
     Dosage: UNK,  UNK
     Route: 065
     Dates: start: 2015

REACTIONS (3)
  - Diplopia [Recovered/Resolved]
  - Eyelid ptosis [Recovered/Resolved]
  - Myasthenia gravis [Recovering/Resolving]

NARRATIVE: CASE EVENT DATE: 20220101
